FAERS Safety Report 12072528 (Version 6)
Quarter: 2016Q2

REPORT INFORMATION
  Report Type: Spontaneous
  Country: NO (occurrence: NO)
  Receive Date: 20160212
  Receipt Date: 20160408
  Transmission Date: 20160815
  Serious: Yes (Hospitalization, Congenital Anomaly, Other)
  Sender: FDA-Public Use
  Company Number: NO-ACTAVIS-2016-02700

PATIENT
  Sex: Female

DRUGS (6)
  1. MORPHINE SULFATE (WATSON LABORATORIES) [Suspect]
     Active Substance: MORPHINE SULFATE
     Indication: ABDOMINAL PAIN
     Dosage: UNK
     Route: 064
  2. VOLTAREN [Suspect]
     Active Substance: DICLOFENAC SODIUM
     Indication: PRODUCT USED FOR UNKNOWN INDICATION
     Dosage: UNK
     Route: 064
  3. PARACETAMOL  (UNKNOWN) [Suspect]
     Active Substance: ACETAMINOPHEN
     Indication: ABDOMINAL PAIN
     Dosage: UNK, TID
     Route: 064
  4. SYMBICORT [Suspect]
     Active Substance: BUDESONIDE\FORMOTEROL FUMARATE DIHYDRATE
     Indication: ASTHMA
     Dosage: UNK
     Route: 064
  5. MECILLINAM [Suspect]
     Active Substance: AMDINOCILLIN
     Indication: PYELONEPHRITIS
     Dosage: UNK
     Route: 064
  6. DICLOFENAC (UNKNOWN) [Suspect]
     Active Substance: DICLOFENAC SODIUM
     Indication: ABDOMINAL PAIN
     Dosage: 50 MG, TID
     Route: 064

REACTIONS (5)
  - Ductus arteriosus premature closure [Recovered/Resolved]
  - Congenital pulmonary hypertension [Recovered/Resolved]
  - Foetal exposure during pregnancy [Unknown]
  - Tricuspid valve incompetence [Recovered/Resolved]
  - Right ventricular failure [Recovered/Resolved]
